FAERS Safety Report 6035290-5 (Version None)
Quarter: 2009Q1

REPORT INFORMATION
  Report Type: 
  Country: None (occurrence: None)
  Receive Date: 20090109
  Receipt Date: 20081229
  Transmission Date: 20090719
  Serious: Yes (Other)
  Sender: FDA-Public Use
  Company Number: STI-2008-03846

PATIENT
  Age: 54 Year
  Sex: Female
  Weight: 83.9154 kg

DRUGS (8)
  1. HYDROCORTISONE ACETATE [Suspect]
     Indication: ADRENAL DISORDER
     Dosage: 15 MG IN AM AND 5 MG AT 4PM, ORAL
     Route: 048
     Dates: start: 20070101
  2. HYDROCORTISONE ACETATE [Suspect]
     Indication: HORMONE THERAPY
     Dosage: 15 MG IN AM AND 5 MG AT 4PM, ORAL
     Route: 048
     Dates: start: 20070101
  3. DESMOPRESSIN ACETATE [Suspect]
  4. SYNTHROID [Concomitant]
  5. NORTIFLEX [Concomitant]
  6. TRIEST [Concomitant]
  7. NORVASC [Concomitant]
  8. CLONIDINE [Concomitant]

REACTIONS (12)
  - ANOREXIA [None]
  - ASTHENIA [None]
  - BLOOD ALBUMIN DECREASED [None]
  - BLOOD SODIUM DECREASED [None]
  - HEART RATE INCREASED [None]
  - HYPOAESTHESIA ORAL [None]
  - INSOMNIA [None]
  - LIP SWELLING [None]
  - NERVOUSNESS [None]
  - PARAESTHESIA ORAL [None]
  - THERAPEUTIC RESPONSE UNEXPECTED WITH DRUG SUBSTITUTION [None]
  - THINKING ABNORMAL [None]
